FAERS Safety Report 11803047 (Version 1)
Quarter: 2015Q4

REPORT INFORMATION
  Report Type: Spontaneous
  Country: US (occurrence: US)
  Receive Date: 20151204
  Receipt Date: 20151204
  Transmission Date: 20160305
  Serious: No
  Sender: FDA-Public Use
  Company Number: US-BIOGENIDEC-2015BI159627

PATIENT
  Sex: Female

DRUGS (1)
  1. AVONEX [Suspect]
     Active Substance: INTERFERON BETA-1A
     Indication: MULTIPLE SCLEROSIS
     Route: 030
     Dates: start: 19980715, end: 20101221

REACTIONS (4)
  - Injection site scar [Unknown]
  - Stress [Unknown]
  - Polycythaemia vera [Not Recovered/Not Resolved]
  - Multiple sclerosis [Unknown]
